FAERS Safety Report 9306498 (Version 1)
Quarter: 2013Q2

REPORT INFORMATION
  Report Type: Spontaneous
  Country: CA (occurrence: CA)
  Receive Date: 20130523
  Receipt Date: 20130523
  Transmission Date: 20140414
  Serious: Yes (Other)
  Sender: FDA-Public Use
  Company Number: CA-AMGEN-CANSP2013036444

PATIENT
  Age: 70 Year
  Sex: Female
  Weight: 79.55 kg

DRUGS (1)
  1. PROLIA [Suspect]
     Indication: OSTEOPOROSIS POSTMENOPAUSAL
     Dosage: 60 MG, UNK
     Dates: start: 20120618

REACTIONS (3)
  - Diverticulitis [Recovered/Resolved]
  - Asthma [Not Recovered/Not Resolved]
  - Sinusitis [Recovered/Resolved]
